FAERS Safety Report 9276907 (Version 1)
Quarter: 2013Q2

REPORT INFORMATION
  Report Type: Spontaneous
  Country: IE (occurrence: IE)
  Receive Date: 20130507
  Receipt Date: 20130507
  Transmission Date: 20140414
  Serious: Yes (Other)
  Sender: FDA-Public Use
  Company Number: IE-GILEAD-2013-0074663

PATIENT
  Sex: Female

DRUGS (2)
  1. TRUVADA [Suspect]
     Indication: HIV INFECTION
  2. DARUNAVIR [Concomitant]
     Indication: HIV INFECTION

REACTIONS (1)
  - Abortion spontaneous [Recovered/Resolved]
